FAERS Safety Report 12694603 (Version 4)
Quarter: 2018Q2

REPORT INFORMATION
  Report Type: Spontaneous
  Country: IE (occurrence: IE)
  Receive Date: 20160829
  Receipt Date: 20180504
  Transmission Date: 20180711
  Serious: Yes (Life-Threatening, Other)
  Sender: FDA-Public Use
  Company Number: IE-JNJFOC-20160813214

PATIENT
  Age: 13 Year
  Sex: Male

DRUGS (3)
  1. IBUPROFEN. [Suspect]
     Active Substance: IBUPROFEN
     Indication: DENTAL CARE
     Route: 065
  2. LIGNOSPAN SPECIAL [Concomitant]
     Active Substance: EPINEPHRINE BITARTRATE\LIDOCAINE HYDROCHLORIDE
     Indication: DENTAL CARE
     Route: 065
  3. IBUPROFEN. [Suspect]
     Active Substance: IBUPROFEN
     Route: 065

REACTIONS (7)
  - Flushing [Unknown]
  - Rhinorrhoea [Unknown]
  - Angioedema [Unknown]
  - Periorbital oedema [Unknown]
  - Aspirin-exacerbated respiratory disease [Unknown]
  - Throat tightness [Unknown]
  - Drug hypersensitivity [Unknown]
